FAERS Safety Report 7516915-1 (Version None)
Quarter: 2011Q2

REPORT INFORMATION
  Report Type: 
  Country: None (occurrence: None)
  Receive Date: 20110526
  Receipt Date: 20110526
  Transmission Date: 20111010
  Serious: Yes (Other)
  Sender: FDA-Public Use
  Company Number: None

PATIENT
  Age: 66 Year
  Sex: Male
  Weight: 98 kg

DRUGS (7)
  1. ACTOS [Concomitant]
  2. PRAVASTATIN [Concomitant]
  3. XANAX XR [Concomitant]
  4. VYVANSE [Suspect]
     Indication: ATTENTION DEFICIT/HYPERACTIVITY DISORDER
     Dates: start: 20110522, end: 20110523
  5. LISINOPRIL [Concomitant]
  6. GLUCOTROL [Concomitant]
  7. METFORMIN HYDROCHLORIDE [Concomitant]

REACTIONS (4)
  - HEART RATE IRREGULAR [None]
  - HYPERTENSION [None]
  - HEART RATE INCREASED [None]
  - CONDITION AGGRAVATED [None]
